FAERS Safety Report 21213105 (Version 1)
Quarter: 2022Q3

REPORT INFORMATION
  Report Type: Spontaneous
  Country: CA (occurrence: None)
  Receive Date: 20220815
  Receipt Date: 20220815
  Transmission Date: 20221027
  Serious: Yes (Other)
  Sender: FDA-Public Use
  Company Number: None

PATIENT
  Age: 62 Year
  Sex: Female
  Weight: 58.5 kg

DRUGS (7)
  1. CEFIXIME [Suspect]
     Active Substance: CEFIXIME
     Indication: Urinary tract infection
     Dosage: OTHER QUANTITY : 7 TABLET(S);?FREQUENCY : DAILY;?
     Route: 048
     Dates: start: 20220806, end: 20220808
  2. Vitamins A [Concomitant]
  3. VITAMIN B [Concomitant]
     Active Substance: VITAMIN B
  4. VITAMIN C [Concomitant]
     Active Substance: ASCORBIC ACID
  5. VITAMIN D [Concomitant]
     Active Substance: VITAMIN D NOS
  6. VITAMIN E [Concomitant]
     Active Substance: .ALPHA.-TOCOPHEROL
  7. MENAQUINONE 6 [Concomitant]
     Active Substance: MENAQUINONE 6

REACTIONS (7)
  - Vomiting [None]
  - Faeces discoloured [None]
  - Diarrhoea [None]
  - Gastrointestinal pain [None]
  - Feeding disorder [None]
  - Fluid intake reduced [None]
  - Hypersomnia [None]

NARRATIVE: CASE EVENT DATE: 20220808
